FAERS Safety Report 5165787-1 (Version None)
Quarter: 2006Q4

REPORT INFORMATION
  Report Type: 
  Country: None (occurrence: None)
  Receive Date: 20061128
  Receipt Date: 20061115
  Transmission Date: 20070319
  Serious: Yes (Death)
  Sender: FDA-Public Use
  Company Number: 2005153038

PATIENT
  Age: 74 Year
  Sex: Male
  Weight: 94 kg

DRUGS (5)
  1. SUTENT [Suspect]
     Indication: NON-SMALL CELL LUNG CANCER
     Dosage: 50 MG (50 MG, 1 IN 1 D), ORAL  ; 37.5 MG (12.5 MG, 3 IN 1 D), ORAL
     Route: 048
     Dates: start: 20050526, end: 20050916
  2. SUTENT [Suspect]
     Indication: NON-SMALL CELL LUNG CANCER
     Dosage: 50 MG (50 MG, 1 IN 1 D), ORAL  ; 37.5 MG (12.5 MG, 3 IN 1 D), ORAL
     Route: 048
     Dates: start: 20051013, end: 20051030
  3. MORPHINE SULFATE [Concomitant]
  4. HYDROCHLOROTHIAZIDE [Concomitant]
  5. ATENOLOL [Concomitant]

REACTIONS (6)
  - DISEASE PROGRESSION [None]
  - DYSPNOEA [None]
  - FATIGUE [None]
  - MALIGNANT PLEURAL EFFUSION [None]
  - RESPIRATORY DISORDER [None]
  - RESPIRATORY FAILURE [None]
